FAERS Safety Report 23804479 (Version 1)
Quarter: 2024Q2

REPORT INFORMATION
  Report Type: Spontaneous
  Country: US (occurrence: None)
  Receive Date: 20240501
  Receipt Date: 20240501
  Transmission Date: 20240716
  Serious: No
  Sender: FDA-Public Use
  Company Number: None

PATIENT
  Age: 75 Year
  Sex: Male

DRUGS (1)
  1. CEFTRIAXONE [Suspect]
     Active Substance: CEFTRIAXONE\CEFTRIAXONE SODIUM
     Indication: Urinary tract infection
     Dates: start: 20230101, end: 20230222

REACTIONS (5)
  - Acute kidney injury [None]
  - Cholelithiasis [None]
  - Pancreatitis [None]
  - Tubulointerstitial nephritis [None]
  - Renal tubular necrosis [None]

NARRATIVE: CASE EVENT DATE: 20230222
